FAERS Safety Report 20814479 (Version 1)
Quarter: 2022Q2

REPORT INFORMATION
  Report Type: Spontaneous
  Country: US (occurrence: None)
  Receive Date: 20220510
  Receipt Date: 20220510
  Transmission Date: 20220721
  Serious: Yes (Life-Threatening, Hospitalization, Other)
  Sender: FDA-Public Use
  Company Number: None

PATIENT
  Sex: Female
  Weight: 76.5 kg

DRUGS (3)
  1. FERUMOXYTOL [Suspect]
     Active Substance: FERUMOXYTOL
     Indication: Anaemia
     Dosage: FREQUENCY : AS NEEDED;?
     Route: 042
     Dates: start: 20211012, end: 20211012
  2. INDOMETHACIN [Concomitant]
     Active Substance: INDOMETHACIN
  3. OMEPRAZOLE [Concomitant]
     Active Substance: OMEPRAZOLE

REACTIONS (9)
  - Contusion [None]
  - Nausea [None]
  - Migraine [None]
  - Vomiting [None]
  - Intestinal obstruction [None]
  - Spleen disorder [None]
  - Hepatic function abnormal [None]
  - Ileus paralytic [None]
  - Therapy cessation [None]
